FAERS Safety Report 11499107 (Version 3)
Quarter: 2017Q1

REPORT INFORMATION
  Report Type: Spontaneous
  Country: US (occurrence: US)
  Receive Date: 20150913
  Receipt Date: 20170302
  Transmission Date: 20170428
  Serious: Yes (Other)
  Sender: FDA-Public Use
  Company Number: US-ELI_LILLY_AND_COMPANY-US201509001366

PATIENT
  Sex: Female

DRUGS (2)
  1. CYMBALTA [Suspect]
     Active Substance: DULOXETINE HYDROCHLORIDE
     Indication: DEPRESSION
     Dosage: 60 MG, QD
     Route: 048
     Dates: start: 20111102
  2. CYMBALTA [Suspect]
     Active Substance: DULOXETINE HYDROCHLORIDE
     Indication: FIBROMYALGIA
     Dosage: 30 MG, QD
     Route: 048
     Dates: start: 20110224

REACTIONS (12)
  - Nausea [Unknown]
  - Fatigue [Unknown]
  - Visual impairment [Unknown]
  - Weight fluctuation [Unknown]
  - Drug withdrawal syndrome [Unknown]
  - Chest pain [Unknown]
  - Dizziness [Unknown]
  - Nightmare [Unknown]
  - Sleep disorder [Unknown]
  - Depression [Unknown]
  - Mood swings [Unknown]
  - Feeling jittery [Unknown]
